FAERS Safety Report 9542329 (Version 2)
Quarter: 2013Q3

REPORT INFORMATION
  Report Type: Spontaneous
  Country: GR (occurrence: GR)
  Receive Date: 20130923
  Receipt Date: 20130923
  Transmission Date: 20140515
  Serious: Yes (Other)
  Sender: FDA-Public Use
  Company Number: GR-NOVOPROD-384833

PATIENT
  Age: 44 Year
  Sex: Female
  Weight: 62 kg

DRUGS (2)
  1. PROTAPHANE [Suspect]
     Indication: GESTATIONAL DIABETES
     Dosage: 8 IU, QD
     Route: 065
  2. NOVORAPID [Suspect]
     Indication: GESTATIONAL DIABETES
     Dosage: 11 IU, QD
     Route: 065

REACTIONS (2)
  - Abortion spontaneous [Unknown]
  - Exposure during pregnancy [Unknown]
